FAERS Safety Report 4261829-6 (Version None)
Quarter: 2004Q1

REPORT INFORMATION
  Report Type: 
  Country: None (occurrence: None)
  Receive Date: 20040102
  Receipt Date: 20031226
  Transmission Date: 20041129
  Serious: Yes (Death, Hospitalization)
  Sender: FDA-Public Use
  Company Number: 200320708US

PATIENT
  Age: 51 Year
  Sex: Female
  Weight: 82.1 kg

DRUGS (4)
  1. DOCETAXEL [Suspect]
     Indication: ANAL CANCER
     Route: 042
     Dates: start: 20031117, end: 20031117
  2. PS-341 [Suspect]
     Indication: ANAL CANCER
     Route: 042
     Dates: start: 20031118, end: 20031118
  3. COUMADIN [Concomitant]
     Dates: end: 20031201
  4. ANALGESIC LIQ [Concomitant]
     Indication: PAIN

REACTIONS (11)
  - ANAL CANCER [None]
  - COAGULOPATHY [None]
  - DYSPNOEA [None]
  - GASTROINTESTINAL HAEMORRHAGE [None]
  - GENERAL PHYSICAL HEALTH DETERIORATION [None]
  - HAEMATURIA [None]
  - HYPERGLYCAEMIA [None]
  - INTERNATIONAL NORMALISED RATIO INCREASED [None]
  - MALIGNANT NEOPLASM PROGRESSION [None]
  - PAIN [None]
  - SINUS TACHYCARDIA [None]
